FAERS Safety Report 7352307-6 (Version None)
Quarter: 2011Q1

REPORT INFORMATION
  Report Type: 
  Country: None (occurrence: None)
  Receive Date: 20110315
  Receipt Date: 20110309
  Transmission Date: 20110831
  Serious: Yes (Life-Threatening)
  Sender: FDA-Public Use
  Company Number: GB-BAYER-2011-021882

PATIENT
  Age: 30 Year
  Sex: Female

DRUGS (1)
  1. QLAIRA FILM-COATED TABLETS [Suspect]
     Indication: CONTRACEPTION
     Dosage: UNK
     Route: 048
     Dates: start: 20101222, end: 20110111

REACTIONS (2)
  - SUICIDAL IDEATION [None]
  - DEPRESSED MOOD [None]
